FAERS Safety Report 7312330-4 (Version None)
Quarter: 2011Q1

REPORT INFORMATION
  Report Type: 
  Country: None (occurrence: None)
  Receive Date: 20110224
  Receipt Date: 20110218
  Transmission Date: 20110831
  Serious: Yes (Other)
  Sender: FDA-Public Use
  Company Number: US-SANOFI-AVENTIS-2011SA005375

PATIENT
  Age: 71 Year
  Sex: Female
  Weight: 77.11 kg

DRUGS (10)
  1. CRESTOR [Concomitant]
  2. ALL OTHER THERAPEUTIC PRODUCTS [Concomitant]
  3. SOLOSTAR [Suspect]
     Dates: start: 20080101
  4. METOPROLOL TARTRATE [Concomitant]
  5. AMITRIPTYLINE [Concomitant]
  6. CALCIUM [Concomitant]
  7. FISH OIL [Concomitant]
  8. LANTUS [Suspect]
     Indication: TYPE 2 DIABETES MELLITUS
     Dosage: DOSE:40 UNIT(S)
     Route: 058
     Dates: start: 20080101
  9. LOSARTAN POTASSIUM [Concomitant]
  10. AMLODIPINE [Concomitant]

REACTIONS (3)
  - VISUAL ACUITY REDUCED [None]
  - CORNEAL IMPLANT [None]
  - CATARACT OPERATION [None]
